FAERS Safety Report 18920560 (Version 1)
Quarter: 2021Q1

REPORT INFORMATION
  Report Type: Spontaneous
  Country: US (occurrence: US)
  Receive Date: 20210222
  Receipt Date: 20210222
  Transmission Date: 20210420
  Serious: Yes (Other)
  Sender: FDA-Public Use
  Company Number: US-COHERUS BIOSCIENCES, INC-2021US001136

PATIENT

DRUGS (1)
  1. UDENYCA [Suspect]
     Active Substance: PEGFILGRASTIM-CBQV
     Indication: PRODUCT USED FOR UNKNOWN INDICATION

REACTIONS (5)
  - Rash [Unknown]
  - Anaphylactic reaction [Unknown]
  - Seizure [Unknown]
  - Urticaria [Unknown]
  - Vomiting [Unknown]
